FAERS Safety Report 16765707 (Version 4)
Quarter: 2020Q2

REPORT INFORMATION
  Report Type: Report from Study
  Country: None (occurrence: US)
  Receive Date: 20190903
  Receipt Date: 20200401
  Transmission Date: 20200713
  Serious: Yes (Hospitalization, Other)
  Sender: FDA-Public Use
  Company Number: US-INSMED, INC.-US-INS-19-00169

PATIENT
  Age: 68 Year
  Sex: Female

DRUGS (6)
  1. LAMIRA NEBULIZER SYSTEM [Suspect]
     Active Substance: DEVICE
  2. ETHAMBUTOL [Concomitant]
     Active Substance: ETHAMBUTOL HYDROCHLORIDE
     Indication: MYCOBACTERIUM AVIUM COMPLEX INFECTION
  3. ARIKAYCE [Suspect]
     Active Substance: AMIKACIN
     Indication: MYCOBACTERIUM AVIUM COMPLEX INFECTION
     Route: 055
     Dates: start: 20181112
  4. RESERPINE. [Concomitant]
     Active Substance: RESERPINE
     Indication: MYCOBACTERIUM AVIUM COMPLEX INFECTION
  5. AMIKACIN. [Concomitant]
     Active Substance: AMIKACIN
     Indication: PRODUCT USED FOR UNKNOWN INDICATION
     Route: 042
     Dates: start: 2019
  6. AZITHROMYCIN ANHYDROUS. [Concomitant]
     Active Substance: AZITHROMYCIN ANHYDROUS
     Indication: MYCOBACTERIUM AVIUM COMPLEX INFECTION

REACTIONS (8)
  - Cough [Not Recovered/Not Resolved]
  - Pulmonary fibrosis [Unknown]
  - Choking [Unknown]
  - Dysphonia [Recovering/Resolving]
  - Bronchopulmonary aspergillosis [Unknown]
  - Gastrointestinal examination [Unknown]
  - Pneumothorax [Unknown]
  - Pneumonia [Unknown]

NARRATIVE: CASE EVENT DATE: 2019
